FAERS Safety Report 13373967 (Version 4)
Quarter: 2018Q1

REPORT INFORMATION
  Report Type: Spontaneous
  Country: US (occurrence: US)
  Receive Date: 20170327
  Receipt Date: 20180125
  Transmission Date: 20180508
  Serious: Yes (Other)
  Sender: FDA-Public Use
  Company Number: US-PFIZER INC-2017130583

PATIENT
  Age: 74 Year
  Sex: Female
  Weight: 93.42 kg

DRUGS (14)
  1. PANTOPRAZOLE SODIUM. [Concomitant]
     Active Substance: PANTOPRAZOLE SODIUM
     Indication: DYSPEPSIA
     Dosage: 40 MG, 1X/DAY
     Dates: start: 201703
  2. VALSARTAN. [Concomitant]
     Active Substance: VALSARTAN
     Indication: PAIN
     Dosage: UNK
  3. RHEUMATE [Suspect]
     Active Substance: LEVOMEFOLIC ACID\METHYLCOBALAMIN\TURMERIC
     Indication: SUPPLEMENTATION THERAPY
     Dosage: UNK, 1X/DAY
  4. NORCO [Concomitant]
     Active Substance: ACETAMINOPHEN\HYDROCODONE BITARTRATE
     Indication: PAIN
     Dosage: UNK
  5. METHOTREXATE SODIUM. [Suspect]
     Active Substance: METHOTREXATE SODIUM
     Indication: RHEUMATOID ARTHRITIS
     Dosage: 15 MG, WEEKLY [2.5MG SIX TABLETS BY MOUTH PER WEEK]
  6. RHEUMATE [Suspect]
     Active Substance: LEVOMEFOLIC ACID\METHYLCOBALAMIN\TURMERIC
     Indication: PAIN
  7. VITAMIN D3 [Concomitant]
     Active Substance: CHOLECALCIFEROL
     Dosage: UNK
  8. AMLODIPINE BESILATE [Suspect]
     Active Substance: AMLODIPINE BESYLATE
     Indication: BLOOD PRESSURE ABNORMAL
     Dosage: 10 MG, 1X/DAY
  9. XELJANZ XR [Suspect]
     Active Substance: TOFACITINIB CITRATE
     Indication: RHEUMATOID ARTHRITIS
     Dosage: 11 MG, UNK
     Route: 048
     Dates: start: 2015
  10. XELJANZ XR [Suspect]
     Active Substance: TOFACITINIB CITRATE
     Dosage: 11 MG, DAILY (PINK CAPSULE PILL ONCE A DAY)
     Route: 048
     Dates: start: 2016
  11. PILOCARPINE HYDROCHLORIDE. [Concomitant]
     Active Substance: PILOCARPINE HYDROCHLORIDE
     Indication: PAIN
     Dosage: 5 MG, 3X/DAY
  12. XELJANZ XR [Suspect]
     Active Substance: TOFACITINIB CITRATE
     Dosage: 11 MG, DAILY
     Route: 048
     Dates: end: 201707
  13. METHOTREXATE SODIUM. [Suspect]
     Active Substance: METHOTREXATE SODIUM
     Dosage: UNK
     Dates: start: 2017, end: 201707
  14. HYDROCHOROTHIAZIDE [Suspect]
     Active Substance: HYDROCHLOROTHIAZIDE
     Indication: DIURETIC THERAPY
     Dosage: 12.5 MG, 1X/DAY

REACTIONS (9)
  - Blood cholesterol increased [Not Recovered/Not Resolved]
  - Synovial cyst [Recovering/Resolving]
  - Rheumatoid arthritis [Recovering/Resolving]
  - Gastric disorder [Recovered/Resolved]
  - Weight decreased [Unknown]
  - Dry eye [Unknown]
  - Diverticulitis [Recovered/Resolved]
  - Hypertension [Not Recovered/Not Resolved]
  - Condition aggravated [Recovering/Resolving]

NARRATIVE: CASE EVENT DATE: 2015
